FAERS Safety Report 18609015 (Version 1)
Quarter: 2020Q4

REPORT INFORMATION
  Report Type: Spontaneous
  Country: FR (occurrence: FR)
  Receive Date: 20201214
  Receipt Date: 20201214
  Transmission Date: 20210114
  Serious: Yes (Life-Threatening, Hospitalization)
  Sender: FDA-Public Use
  Company Number: FR-ROCHE-2728212

PATIENT
  Age: 73 Year
  Sex: Female
  Weight: 81 kg

DRUGS (25)
  1. DIAZEPAM. [Suspect]
     Active Substance: DIAZEPAM
     Indication: PRODUCT USED FOR UNKNOWN INDICATION
     Route: 065
  2. LORMETAZEPAM [Suspect]
     Active Substance: LORMETAZEPAM
     Indication: PRODUCT USED FOR UNKNOWN INDICATION
     Dosage: 2 MG, IN THE EVENING
     Route: 065
  3. SPASFON [Concomitant]
  4. LOSARTAN. [Concomitant]
     Active Substance: LOSARTAN
  5. VITAMINS NOS [Concomitant]
     Active Substance: VITAMINS
  6. LEXOMIL [Suspect]
     Active Substance: BROMAZEPAM
     Route: 065
  7. THERALENE [Suspect]
     Active Substance: TRIMEPRAZINE
     Indication: ANXIETY
     Dosage: 25 GTT, DAILY, IN THE EVENING?25 DRP
     Route: 065
     Dates: start: 202010, end: 202010
  8. TRAMADOL. [Suspect]
     Active Substance: TRAMADOL
     Indication: PRODUCT USED FOR UNKNOWN INDICATION
     Route: 065
  9. DOLIPRANE [Suspect]
     Active Substance: ACETAMINOPHEN
     Indication: PRODUCT USED FOR UNKNOWN INDICATION
     Route: 065
  10. CETIRIZINE DIHYDROCHLORIDE [Suspect]
     Active Substance: CETIRIZINE HYDROCHLORIDE
     Indication: PRODUCT USED FOR UNKNOWN INDICATION
     Route: 065
  11. LAROXYL [Suspect]
     Active Substance: AMITRIPTYLINE HYDROCHLORIDE
     Indication: DEPRESSION
     Dosage: 5 GTT, BID?10 DRP
     Route: 065
  12. MIRTAZAPINE. [Suspect]
     Active Substance: MIRTAZAPINE
     Indication: DEPRESSION
     Dosage: (EVERY ONE DAY), IN THE EVENING
     Route: 065
  13. TEMESTA (LORAZEPAM) [Suspect]
     Active Substance: LORAZEPAM
     Route: 065
  14. LOPERAMIDE [Suspect]
     Active Substance: LOPERAMIDE
     Indication: PRODUCT USED FOR UNKNOWN INDICATION
     Route: 065
  15. MIANSERIN HYDROCHLORIDE [Suspect]
     Active Substance: MIANSERIN HYDROCHLORIDE
     Indication: PRODUCT USED FOR UNKNOWN INDICATION
     Route: 065
  16. MORPHINE [Suspect]
     Active Substance: MORPHINE
     Indication: PRODUCT USED FOR UNKNOWN INDICATION
     Route: 065
     Dates: start: 20201022, end: 20201022
  17. NALOXONE [Suspect]
     Active Substance: NALOXONE
     Indication: PRODUCT USED FOR UNKNOWN INDICATION
     Route: 065
  18. AMPICILLIN [Suspect]
     Active Substance: AMPICILLIN
     Indication: PRODUCT USED FOR UNKNOWN INDICATION
     Route: 065
  19. TEMESTA (LORAZEPAM) [Suspect]
     Active Substance: LORAZEPAM
     Indication: ANXIETY
     Dosage: (IN THE MORNING AND AT NOON IN ADDITION TO THE EVENING)
     Route: 065
  20. METOCLOPRAMIDE. [Suspect]
     Active Substance: METOCLOPRAMIDE
     Indication: PRODUCT USED FOR UNKNOWN INDICATION
     Route: 065
  21. LOVENOX [Concomitant]
     Active Substance: ENOXAPARIN SODIUM
     Dosage: 0.4 MG, DAILY
  22. SALBUTAMOL [Concomitant]
     Active Substance: ALBUTEROL
  23. LEXOMIL [Suspect]
     Active Substance: BROMAZEPAM
     Indication: ANXIETY
     Route: 065
  24. TRAMADOL. [Suspect]
     Active Substance: TRAMADOL
     Route: 065
  25. INEXIUM [Concomitant]
     Active Substance: ESOMEPRAZOLE

REACTIONS (9)
  - Thymus disorder [Unknown]
  - Coma [Recovered/Resolved]
  - Generalised anxiety disorder [Unknown]
  - Appetite disorder [Unknown]
  - Bradypnoea [Recovered/Resolved]
  - Renal failure [Unknown]
  - Respiratory acidosis [Unknown]
  - Tremor [Unknown]
  - Sleep disorder [Unknown]

NARRATIVE: CASE EVENT DATE: 20201022
